FAERS Safety Report 9803263 (Version 2)
Quarter: 2014Q1

REPORT INFORMATION
  Report Type: Report from Study
  Country: US (occurrence: US)
  Receive Date: 20140108
  Receipt Date: 20140117
  Transmission Date: 20141002
  Serious: Yes (Death, Other)
  Sender: FDA-Public Use
  Company Number: US-ASTELLAS-2014US000125

PATIENT
  Sex: Male

DRUGS (1)
  1. ERLOTINIB TABLET [Suspect]
     Indication: LUNG NEOPLASM MALIGNANT
     Dosage: UNK
     Route: 048

REACTIONS (5)
  - Atrial fibrillation [Fatal]
  - Hypertension [Unknown]
  - Lung cancer metastatic [Fatal]
  - Therapeutic response decreased [Unknown]
  - Rash [Recovered/Resolved]
